FAERS Safety Report 8523728-0 (Version None)
Quarter: 2012Q3

REPORT INFORMATION
  Report Type: 
  Country: None (occurrence: None)
  Receive Date: 20120720
  Receipt Date: 20120712
  Transmission Date: 20120928
  Serious: Yes (Other)
  Sender: FDA-Public Use
  Company Number: US-JNJFOC-20120610347

PATIENT
  Age: 69 Year
  Sex: Male

DRUGS (11)
  1. LOVAZA [Concomitant]
     Indication: BLOOD CHOLESTEROL
     Route: 065
     Dates: start: 20050801
  2. GLIMEPIRIDE [Concomitant]
     Indication: DIABETES MELLITUS
     Route: 065
     Dates: start: 20120101
  3. METHOTREXATE [Concomitant]
     Route: 048
  4. PAROXETINE [Concomitant]
     Indication: DEPRESSION
     Route: 065
  5. WELCHOL [Concomitant]
     Indication: BLOOD CHOLESTEROL
     Route: 065
     Dates: start: 20020901
  6. LOPRESSOR [Concomitant]
     Indication: BLOOD PRESSURE
     Route: 065
  7. METFORMIN HYDROCHLORIDE [Concomitant]
     Indication: DIABETES MELLITUS
     Route: 065
  8. ASPIRIN [Concomitant]
     Indication: CARDIAC DISORDER
     Route: 065
     Dates: start: 19950801
  9. REMICADE [Suspect]
     Indication: RHEUMATOID ARTHRITIS
     Dosage: LAST DOSE WAS 6 MONTHS AGO
     Route: 042
     Dates: start: 20080601, end: 20120508
  10. FINASTERIDE [Concomitant]
     Indication: BENIGN PROSTATIC HYPERPLASIA
     Route: 065
  11. PLAVIX [Concomitant]
     Indication: CARDIAC DISORDER
     Route: 065
     Dates: start: 20020901

REACTIONS (1)
  - HODGKIN'S DISEASE [None]
